FAERS Safety Report 11898512 (Version 1)
Quarter: 2016Q1

REPORT INFORMATION
  Report Type: Spontaneous
  Country: US (occurrence: US)
  Receive Date: 20160108
  Receipt Date: 20160108
  Transmission Date: 20160526
  Serious: Yes (Hospitalization)
  Sender: FDA-Public Use
  Company Number: US-JNJFOC-20160101436

PATIENT
  Age: 78 Year
  Sex: Female
  Weight: 62.13 kg

DRUGS (6)
  1. DOXIL [Suspect]
     Active Substance: DOXORUBICIN HYDROCHLORIDE
     Indication: BREAST CANCER
     Route: 065
     Dates: start: 20151123
  2. ONDANSETRON [Concomitant]
     Active Substance: ONDANSETRON
     Indication: NAUSEA
     Route: 065
     Dates: start: 201304
  3. CIMETIDINE [Concomitant]
     Active Substance: CIMETIDINE
     Dosage: AS REQUIRED PRN
     Route: 065
  4. DIPHENHYDRAMINE HCL [Concomitant]
     Active Substance: DIPHENHYDRAMINE HYDROCHLORIDE
     Indication: SEASONAL ALLERGY
     Dosage: PRN AS REQUIRED
     Route: 048
     Dates: start: 201009
  5. IBRUTINIB [Concomitant]
     Active Substance: IBRUTINIB
     Indication: BREAST CANCER
     Route: 048
     Dates: start: 20151007
  6. LOMOTIL [Concomitant]
     Active Substance: ATROPINE SULFATE\DIPHENOXYLATE HYDROCHLORIDE
     Indication: DIARRHOEA
     Dosage: 2.5-0.025MG
     Route: 048
     Dates: start: 201305

REACTIONS (5)
  - Urinary retention [Unknown]
  - Cystitis [Unknown]
  - Constipation [Unknown]
  - Atrial flutter [Recovered/Resolved]
  - Cardiac failure [Recovered/Resolved]

NARRATIVE: CASE EVENT DATE: 201512
